FAERS Safety Report 13870400 (Version 3)
Quarter: 2017Q4

REPORT INFORMATION
  Report Type: Report from Study
  Country: US (occurrence: US)
  Receive Date: 20170815
  Receipt Date: 20171208
  Transmission Date: 20180320
  Serious: Yes (Other)
  Sender: FDA-Public Use
  Company Number: US-JAZZ-2016-US-023125

PATIENT
  Sex: Male
  Weight: 102.95 kg

DRUGS (51)
  1. XYREM [Suspect]
     Active Substance: SODIUM OXYBATE
     Indication: NARCOLEPSY
     Dosage: 2.5 G, BID
     Route: 048
     Dates: start: 201505, end: 2015
  2. XYREM [Suspect]
     Active Substance: SODIUM OXYBATE
     Dosage: 5 G, QD
     Route: 048
     Dates: start: 201511
  3. BELSOMRA [Concomitant]
     Active Substance: SUVOREXANT
  4. ACAI BERRY [Concomitant]
  5. ACETAMINOPHEN. [Concomitant]
     Active Substance: ACETAMINOPHEN
  6. XYREM [Suspect]
     Active Substance: SODIUM OXYBATE
     Dosage: 4 G, QD
     Route: 048
     Dates: start: 201511
  7. BIOTIN [Concomitant]
     Active Substance: BIOTIN
  8. NYSTATIN. [Concomitant]
     Active Substance: NYSTATIN
  9. CLOMIPHENE CITRATE. [Concomitant]
     Active Substance: CLOMIPHENE CITRATE
  10. FIORICET [Concomitant]
     Active Substance: ACETAMINOPHEN\BUTALBITAL\CAFFEINE
  11. FLEXERIL [Concomitant]
     Active Substance: CYCLOBENZAPRINE HYDROCHLORIDE
  12. MAGNESIUM GLUCEPTATE [Concomitant]
     Active Substance: MAGNESIUM GLUCEPTATE
  13. SELENIUM [Concomitant]
     Active Substance: SELENIUM
  14. SYNTHROID [Concomitant]
     Active Substance: LEVOTHYROXINE SODIUM
  15. VITAMIN D3 [Concomitant]
     Active Substance: CHOLECALCIFEROL
  16. VALTREX [Concomitant]
     Active Substance: VALACYCLOVIR HYDROCHLORIDE
  17. 5-METHYLTETRAHYDROFOLATE [Concomitant]
  18. HYDROCODONE BITARTRATE AND ACETAMINOPHEN [Concomitant]
     Active Substance: ACETAMINOPHEN\HYDROCODONE BITARTRATE
  19. ASTELIN                            /00085801/ [Concomitant]
     Active Substance: AZELASTINE HYDROCHLORIDE
  20. DIPHENHYDRAMINE. [Concomitant]
     Active Substance: DIPHENHYDRAMINE
  21. PROMETHAZINE [Concomitant]
     Active Substance: PROMETHAZINE\PROMETHAZINE HYDROCHLORIDE
  22. DIPHENHIST [Concomitant]
     Active Substance: DIPHENHYDRAMINE HYDROCHLORIDE
  23. METHYLCOBALAMIN. [Concomitant]
     Active Substance: METHYLCOBALAMIN
  24. TRIAMCINOLONE [Concomitant]
     Active Substance: TRIAMCINOLONE
  25. DOCUSATE SODIUM. [Concomitant]
     Active Substance: DOCUSATE SODIUM
  26. VITAMIN B12 [Concomitant]
     Active Substance: CYANOCOBALAMIN
  27. GABAPENTIN. [Concomitant]
     Active Substance: GABAPENTIN
  28. TRAMADOL HCL [Concomitant]
     Active Substance: TRAMADOL HYDROCHLORIDE
  29. AFRIN [Concomitant]
     Active Substance: OXYMETAZOLINE
  30. AYR SALINE [Concomitant]
  31. MOBIC [Concomitant]
     Active Substance: MELOXICAM
  32. TESTOSTERONE CYPIONATE. [Concomitant]
     Active Substance: TESTOSTERONE CYPIONATE
  33. TURMERIC                           /01079601/ [Concomitant]
     Active Substance: HERBALS\TURMERIC
  34. LYRICA [Concomitant]
     Active Substance: PREGABALIN
  35. OXYCODONE AND ACETAMINOPHEN [Concomitant]
     Active Substance: ACETAMINOPHEN\OXYCODONE HYDROCHLORIDE
  36. PROTONIX                           /00661201/ [Concomitant]
     Active Substance: OMEPRAZOLE
  37. FLONASE                            /00908302/ [Concomitant]
     Active Substance: MOMETASONE FUROATE
  38. PROPRANOLOL [Concomitant]
     Active Substance: PROPRANOLOL HYDROCHLORIDE
  39. ACETYL L-CARNITINE                 /00949201/ [Concomitant]
  40. BENTYL [Concomitant]
     Active Substance: DICYCLOMINE HYDROCHLORIDE
  41. DEMEROL [Concomitant]
     Active Substance: MEPERIDINE HYDROCHLORIDE
  42. GLUCOSAMINE CHONDROITIN            /01430901/ [Concomitant]
  43. KLOR-CON [Concomitant]
     Active Substance: POTASSIUM CHLORIDE
  44. MUPIROCIN. [Concomitant]
     Active Substance: MUPIROCIN
  45. PROMETHAZINE [Concomitant]
     Active Substance: PROMETHAZINE\PROMETHAZINE HYDROCHLORIDE
  46. XYREM [Suspect]
     Active Substance: SODIUM OXYBATE
     Dosage: 3.75 G, BID
     Route: 048
     Dates: start: 2015, end: 2015
  47. MEDROL [Concomitant]
     Active Substance: METHYLPREDNISOLONE
  48. LASIX [Concomitant]
     Active Substance: FUROSEMIDE
  49. NORVASC [Concomitant]
     Active Substance: AMLODIPINE BESYLATE
  50. PROTONIX                           /00661201/ [Concomitant]
     Active Substance: OMEPRAZOLE
  51. LIDOCAINE HCL [Concomitant]
     Active Substance: LIDOCAINE HYDROCHLORIDE

REACTIONS (7)
  - Weight increased [Unknown]
  - Neck pain [Recovering/Resolving]
  - Epistaxis [Recovering/Resolving]
  - Back pain [Recovering/Resolving]
  - Blood pressure increased [Unknown]
  - Arrhythmia [Unknown]
  - Fatigue [Unknown]
